FAERS Safety Report 7104906-4 (Version None)
Quarter: 2010Q4

REPORT INFORMATION
  Report Type: 
  Country: None (occurrence: None)
  Receive Date: 20101109
  Receipt Date: 20101101
  Transmission Date: 20110411
  Serious: Yes (Death)
  Sender: FDA-Public Use
  Company Number: 020316

PATIENT
  Sex: Male
  Weight: 126.5536 kg

DRUGS (4)
  1. KEPPRA [Suspect]
     Indication: CONVULSION
     Dosage: 750, 2 TABLETS TWICE DAILY ORAL
     Route: 048
     Dates: start: 20090901, end: 20100901
  2. DILANTIN [Concomitant]
  3. SEROQUEL [Concomitant]
  4. FENTANYL CITRATE [Concomitant]

REACTIONS (1)
  - UNRESPONSIVE TO STIMULI [None]
